FAERS Safety Report 9122662 (Version 1)
Quarter: 2013Q1

REPORT INFORMATION
  Report Type: Spontaneous
  Country: US (occurrence: US)
  Receive Date: 20130114
  Receipt Date: 20130114
  Transmission Date: 20140127
  Serious: Yes (Other)
  Sender: FDA-Public Use
  Company Number: US-RB-048302-13

PATIENT
  Age: 49 Year
  Sex: Female

DRUGS (2)
  1. MUCINEX DM MAXIMUM STRENGTH (GUAIFENESIN) [Suspect]
     Indication: PRODUCT USED FOR UNKNOWN INDICATION
     Dosage: ENDED ON 22-OCT-2012.
     Route: 048
     Dates: start: 20121016
  2. MUCINEX DM MAXIMUM STRENGTH (DEXTROMETHORPHAN HYDROBROMIDE) [Suspect]

REACTIONS (8)
  - Anxiety [Not Recovered/Not Resolved]
  - Hallucination [Recovered/Resolved]
  - Panic attack [Unknown]
  - Psychomotor hyperactivity [Recovered/Resolved]
  - Nervousness [Unknown]
  - Tremor [Unknown]
  - Negative thoughts [Unknown]
  - Feeling abnormal [Unknown]
